FAERS Safety Report 6440182-3 (Version None)
Quarter: 2009Q4

REPORT INFORMATION
  Report Type: 
  Country: None (occurrence: None)
  Receive Date: 20091113
  Receipt Date: 20090713
  Transmission Date: 20100525
  Serious: No
  Sender: FDA-Public Use
  Company Number: A0796662A

PATIENT
  Age: 59 Year
  Sex: Female

DRUGS (4)
  1. COREG [Suspect]
     Indication: HYPERTENSION
     Route: 048
     Dates: start: 20080701, end: 20080801
  2. COREG CR [Suspect]
     Indication: HYPERTENSION
     Dosage: 40MG VARIABLE DOSE
     Route: 048
     Dates: start: 20080801
  3. NEXIUM [Concomitant]
  4. SIMVASTATIN [Concomitant]

REACTIONS (9)
  - ARRHYTHMIA [None]
  - DIARRHOEA [None]
  - DRUG EFFECT DECREASED [None]
  - DRUG INEFFECTIVE [None]
  - FEELING HOT [None]
  - HEART RATE INCREASED [None]
  - HYPERHIDROSIS [None]
  - OVERDOSE [None]
  - PALPITATIONS [None]
